FAERS Safety Report 19313937 (Version 1)
Quarter: 2021Q2

REPORT INFORMATION
  Report Type: Spontaneous
  Country: US (occurrence: US)
  Receive Date: 20210527
  Receipt Date: 20210527
  Transmission Date: 20210717
  Serious: Yes (Death)
  Sender: FDA-Public Use
  Company Number: None

PATIENT
  Age: 69 Year
  Sex: Male

DRUGS (1)
  1. AMBRISENTAN 10MG TABLETS 30/BO: 10MG [Suspect]
     Active Substance: AMBRISENTAN
     Indication: PULMONARY ARTERIAL HYPERTENSION
     Route: 048
     Dates: start: 20201103, end: 20210510

REACTIONS (8)
  - Cough [None]
  - Disease progression [None]
  - Pulmonary arterial hypertension [None]
  - Fatigue [None]
  - Oxygen saturation decreased [None]
  - Dyspnoea [None]
  - Chills [None]
  - Peripheral swelling [None]

NARRATIVE: CASE EVENT DATE: 20210510
